FAERS Safety Report 16657683 (Version 2)
Quarter: 2019Q3

REPORT INFORMATION
  Report Type: Spontaneous
  Country: NL (occurrence: DK)
  Receive Date: 20190801
  Receipt Date: 20190829
  Transmission Date: 20191004
  Serious: Yes (Death, Hospitalization)
  Sender: FDA-Public Use
  Company Number: DK-FRESENIUS KABI-FK201908359

PATIENT
  Age: 64 Year
  Sex: Male

DRUGS (3)
  1. CARBOPLATIN (MANUFACTURER UNKNOWN) [Suspect]
     Active Substance: CARBOPLATIN
     Indication: LUNG NEOPLASM MALIGNANT
     Route: 065
     Dates: start: 20190607
  2. GEMCITABINE. [Suspect]
     Active Substance: GEMCITABINE
     Indication: LUNG NEOPLASM MALIGNANT
     Route: 065
     Dates: start: 20190607
  3. GEMCITABINE. [Suspect]
     Active Substance: GEMCITABINE
     Route: 065
     Dates: start: 20190614

REACTIONS (8)
  - Respiratory failure [Fatal]
  - Hyperhidrosis [Fatal]
  - Metabolic disorder [Fatal]
  - Dyspnoea [Fatal]
  - Pulmonary congestion [Fatal]
  - Hypotension [Fatal]
  - Pancytopenia [Fatal]
  - Fatigue [Fatal]
